FAERS Safety Report 21412253 (Version 1)
Quarter: 2022Q4

REPORT INFORMATION
  Report Type: Spontaneous
  Country: US (occurrence: None)
  Receive Date: 20221004
  Receipt Date: 20221004
  Transmission Date: 20230113
  Serious: Yes (Hospitalization)
  Sender: FDA-Public Use
  Company Number: None

PATIENT
  Sex: Male

DRUGS (12)
  1. CAPECITABINE [Suspect]
     Active Substance: CAPECITABINE
     Indication: Colon cancer
     Dosage: OTHER QUANTITY : 1500/1000MG;?OTHER FREQUENCY : AM\PM;?
     Route: 048
  2. AMLODIPINE [Concomitant]
     Active Substance: AMLODIPINE BESYLATE
  3. CLOBETASOL [Concomitant]
     Active Substance: CLOBETASOL
  4. LIDOCAINE [Concomitant]
     Active Substance: LIDOCAINE
  5. PRILOCAINE [Concomitant]
     Active Substance: PRILOCAINE
  6. LISINOPRIL [Concomitant]
     Active Substance: LISINOPRIL
  7. MINOCYCLINE [Concomitant]
     Active Substance: MINOCYCLINE HYDROCHLORIDE
  8. NORCO [Concomitant]
     Active Substance: ACETAMINOPHEN\HYDROCODONE BITARTRATE
  9. ONDANSETRON [Concomitant]
     Active Substance: ONDANSETRON
  10. PANTOPRAZOLE [Concomitant]
     Active Substance: PANTOPRAZOLE
  11. SILDENAFIL [Concomitant]
     Active Substance: SILDENAFIL
  12. TRAMADOL [Concomitant]
     Active Substance: TRAMADOL

REACTIONS (2)
  - Cerebrovascular accident [None]
  - Cerebral thrombosis [None]
